FAERS Safety Report 7050444-7 (Version None)
Quarter: 2010Q4

REPORT INFORMATION
  Report Type: 
  Country: None (occurrence: None)
  Receive Date: 20101018
  Receipt Date: 20100928
  Transmission Date: 20110411
  Serious: Yes (Other)
  Sender: FDA-Public Use
  Company Number: PHHY2010BR64643

PATIENT
  Age: 62 Year
  Sex: Female

DRUGS (1)
  1. DIOVAN [Suspect]
     Dosage: 160MG, 1 TABLET AT NIGHT

REACTIONS (5)
  - MOVEMENT DISORDER [None]
  - MUSCULOSKELETAL PAIN [None]
  - PERIARTHRITIS [None]
  - TENDON DISORDER [None]
  - TENDON RUPTURE [None]
